FAERS Safety Report 8354867-5 (Version None)
Quarter: 2012Q2

REPORT INFORMATION
  Report Type: 
  Country: None (occurrence: None)
  Receive Date: 20120511
  Receipt Date: 20120502
  Transmission Date: 20120825
  Serious: Yes (Death, Hospitalization)
  Sender: FDA-Public Use
  Company Number: CH-TEVA-311267ISR

PATIENT
  Sex: Male
  Weight: 70 kg

DRUGS (18)
  1. LENALIDOMIDE [Suspect]
     Dosage: 25 MILLIGRAM;
     Route: 048
     Dates: start: 20100202
  2. MAGNESIOCARD [Concomitant]
     Indication: MUSCLE SPASMS
     Route: 048
     Dates: start: 20110525
  3. ACETAMINOPHEN [Concomitant]
     Indication: BACK PAIN
     Route: 048
     Dates: start: 20110819
  4. LENALIDOMIDE [Suspect]
     Dosage: 25 MILLIGRAM;
     Route: 048
     Dates: start: 20111021, end: 20111102
  5. ACIDUM ZOLEDRONICUM [Concomitant]
     Indication: OSTEOLYSIS
     Dosage: .0044 MILLIGRAM;
     Route: 042
     Dates: start: 20090422
  6. DEXAMETHASONE TAB [Suspect]
     Dosage: 20 MILLIGRAM;
     Dates: start: 20111021, end: 20111103
  7. LEVOFLOXACIN [Concomitant]
     Indication: LUNG INFECTION
     Dosage: 2000 MILLIGRAM;
     Route: 048
     Dates: start: 20111101
  8. TAMSULOSIN HYDROCHLORIDUM [Concomitant]
     Indication: BENIGN PROSTATIC HYPERPLASIA
     Dosage: .4 MILLIGRAM;
     Route: 048
     Dates: start: 20030725
  9. TRAMADOL HCL [Concomitant]
     Indication: BACK PAIN
     Route: 048
     Dates: start: 20110819
  10. ACIDUM ACETYLSALICYLICUM [Concomitant]
     Indication: CEREBROVASCULAR DISORDER
     Dosage: 100 MILLIGRAM;
     Route: 048
     Dates: start: 20030725
  11. LENALIDOMIDE [Suspect]
     Indication: MULTIPLE MYELOMA
     Dosage: 10 MILLIGRAM;
     Route: 048
     Dates: start: 20090525
  12. ATORVASTATIN CALCIUM [Concomitant]
     Indication: HYPERCHOLESTEROLAEMIA
     Dosage: 40 MILLIGRAM;
     Route: 048
     Dates: start: 20070727
  13. ACETAMINOPHEN [Concomitant]
     Indication: MUSCULOSKELETAL PAIN
     Route: 048
     Dates: start: 20110525
  14. DEXAMETHASONE TAB [Suspect]
     Indication: MULTIPLE MYELOMA
     Dosage: 20 MILLIGRAM;
     Dates: start: 20090525
  15. LEVOCETIRIZINE DIHYDROCHLORIDE [Concomitant]
     Indication: RASH
     Route: 048
     Dates: start: 20090819
  16. VALTREX [Concomitant]
     Indication: ORAL HERPES
     Dosage: 9 GRAM;
     Route: 048
     Dates: start: 20110923
  17. ACIDUM ACETYLSALICYLICUM [Concomitant]
     Indication: THROMBOSIS PROPHYLAXIS
  18. PANTOPRAZOLE [Concomitant]
     Indication: PROPHYLAXIS
     Route: 048
     Dates: start: 20101207

REACTIONS (18)
  - EMBOLISM VENOUS [None]
  - CEREBROVASCULAR DISORDER [None]
  - RED BLOOD CELL COUNT DECREASED [None]
  - DYSPNOEA [None]
  - LYMPHOCYTE COUNT DECREASED [None]
  - SUDDEN DEATH [None]
  - LUNG INFECTION [None]
  - WHITE BLOOD CELL COUNT DECREASED [None]
  - BLOOD POTASSIUM INCREASED [None]
  - FALL [None]
  - HAEMOGLOBIN DECREASED [None]
  - BLOOD IMMUNOGLOBULIN G DECREASED [None]
  - TACHYPNOEA [None]
  - PULMONARY EMBOLISM [None]
  - CIRCULATORY COLLAPSE [None]
  - PLATELET COUNT DECREASED [None]
  - BLOOD CREATININE INCREASED [None]
  - BLOOD UREA INCREASED [None]
